FAERS Safety Report 19119586 (Version 2)
Quarter: 2021Q3

REPORT INFORMATION
  Report Type: Other
  Country: JP (occurrence: JP)
  Receive Date: 20210412
  Receipt Date: 20210820
  Transmission Date: 20211014
  Serious: Yes (Other)
  Sender: FDA-Public Use
  Company Number: JP-ROCHE-2808449

PATIENT
  Sex: Male

DRUGS (8)
  1. TAS 102 [Suspect]
     Active Substance: TIPIRACIL HYDROCHLORIDE\TRIFLURIDINE
     Indication: COLORECTAL CANCER METASTATIC
     Route: 065
  2. FOLFOX [Concomitant]
     Active Substance: FLUOROURACIL\LEUCOVORIN CALCIUM\OXALIPLATIN
  3. FOLFIRI [Concomitant]
     Active Substance: FLUOROURACIL\IRINOTECAN\LEUCOVORIN
  4. BEVACIZUMAB. [Suspect]
     Active Substance: BEVACIZUMAB
     Indication: COLORECTAL CANCER METASTATIC
     Route: 065
  5. G?CSF [Concomitant]
     Active Substance: GRANULOCYTE COLONY-STIMULATING FACTOR NOS
  6. PANITUMUMAB [Concomitant]
     Active Substance: PANITUMUMAB
  7. REGORAFENIB. [Concomitant]
     Active Substance: REGORAFENIB
  8. RAMUCIRUMAB [Concomitant]
     Active Substance: RAMUCIRUMAB

REACTIONS (2)
  - Haematotoxicity [Unknown]
  - Neutropenia [Recovering/Resolving]
